FAERS Safety Report 24544700 (Version 2)
Quarter: 2024Q4

REPORT INFORMATION
  Report Type: Report from Study
  Country: CA (occurrence: CA)
  Receive Date: 20241024
  Receipt Date: 20241030
  Transmission Date: 20250115
  Serious: Yes (Hospitalization)
  Sender: BAXTER
  Company Number: CA-BAXTER-2024BAX026341

PATIENT
  Age: 75 Year
  Sex: Male
  Weight: 65 kg

DRUGS (19)
  1. DOXORUBICIN [Suspect]
     Active Substance: DOXORUBICIN
     Indication: Diffuse large B-cell lymphoma stage IV
     Dosage: 84 MG, EVERY 3 WEEKS
     Route: 042
     Dates: start: 20240515, end: 20240604
  2. DOXORUBICIN [Suspect]
     Active Substance: DOXORUBICIN
     Dosage: 42 MG, EVERY 3 WEEKS, ONGOING
     Route: 042
     Dates: start: 20240731
  3. CYCLOPHOSPHAMIDE [Suspect]
     Active Substance: CYCLOPHOSPHAMIDE
     Indication: Diffuse large B-cell lymphoma stage IV
     Dosage: 1260 MG, EVERY 3 WEEKS
     Route: 042
     Dates: start: 20240515, end: 20240604
  4. CYCLOPHOSPHAMIDE [Suspect]
     Active Substance: CYCLOPHOSPHAMIDE
     Dosage: 620 MG, EVERY 3 WEEKS, ONGOING
     Route: 042
     Dates: start: 20240731
  5. PREDNISONE [Suspect]
     Active Substance: PREDNISONE
     Indication: Diffuse large B-cell lymphoma stage IV
     Dosage: 100 MG C1-6, DAY 1-5, EVERY 1 DAYS
     Route: 048
     Dates: start: 20240515, end: 20240618
  6. PREDNISONE [Suspect]
     Active Substance: PREDNISONE
     Dosage: 100 MG, EVERY 1 DAYS, ONGOING
     Route: 048
     Dates: start: 20240731
  7. EPCORITAMAB [Suspect]
     Active Substance: EPCORITAMAB
     Indication: Diffuse large B-cell lymphoma stage IV
     Dosage: UNK (NOT ADMINISTERED)
     Route: 065
  8. VINCRISTINE [Suspect]
     Active Substance: VINCRISTINE
     Indication: Diffuse large B-cell lymphoma stage IV
     Dosage: 2 MG, EVERY 3 WEEKS
     Route: 042
     Dates: start: 20240515, end: 20240604
  9. VINCRISTINE [Suspect]
     Active Substance: VINCRISTINE
     Dosage: 1.2 MG, EVERY 3 WEEKS, ONGOING
     Route: 042
     Dates: start: 20240731
  10. RITUXIMAB [Suspect]
     Active Substance: RITUXIMAB
     Indication: Diffuse large B-cell lymphoma stage IV
     Dosage: 630 MG, EVERY 3 WEEKS
     Route: 042
     Dates: start: 20240514, end: 20240604
  11. RITUXIMAB [Suspect]
     Active Substance: RITUXIMAB
     Dosage: 620 MG, EVERY 3 WEEKS,ONGOING
     Route: 042
     Dates: start: 20240731
  12. ALLOPURINOL [Concomitant]
     Active Substance: ALLOPURINOL
     Indication: Gout
     Dosage: 200 MG, EVERY 1 DAYS, START DATE:2023
     Route: 065
  13. ATORVASTATIN [Concomitant]
     Active Substance: ATORVASTATIN
     Indication: Hypertension
     Dosage: 40 MG, EVERY 1 DAYS, START DATE:2009
     Route: 065
  14. SOTALOL HYDROCHLORIDE [Concomitant]
     Active Substance: SOTALOL HYDROCHLORIDE
     Indication: Atrial fibrillation
     Dosage: 40 MG, 2/DAYS, START DATE: 2009
     Route: 065
  15. ENTECAVIR [Concomitant]
     Active Substance: ENTECAVIR
     Indication: Antiviral prophylaxis
     Dosage: 0.5 MG, EVERY 1 DAYS
     Route: 065
     Dates: start: 20240514
  16. TEMAZEPAM [Concomitant]
     Active Substance: TEMAZEPAM
     Indication: Insomnia
     Dosage: 30 MG, AS NECESSARY, START DATE: 2003
     Route: 065
     Dates: end: 20240617
  17. TEMAZEPAM [Concomitant]
     Active Substance: TEMAZEPAM
     Dosage: 30 MG, EVERY 1 DAYS
     Route: 065
     Dates: start: 20240617, end: 20240617
  18. TEMAZEPAM [Concomitant]
     Active Substance: TEMAZEPAM
     Dosage: 15 MG, EVERY 1 DAYS
     Route: 065
     Dates: start: 20240618, end: 20240625
  19. APIXABAN [Concomitant]
     Active Substance: APIXABAN
     Indication: Atrial fibrillation
     Dosage: 5 MG, 2/DAYS, START DATE:2009
     Route: 065

REACTIONS (1)
  - Cognitive disorder [Recovered/Resolved]
